FAERS Safety Report 26012381 (Version 1)
Quarter: 2025Q4

REPORT INFORMATION
  Report Type: Spontaneous
  Country: EU (occurrence: EU)
  Receive Date: 20251107
  Receipt Date: 20251107
  Transmission Date: 20260118
  Serious: Yes (Other)
  Sender: PFIZER
  Company Number: None

PATIENT
  Age: 53 Year
  Sex: Female

DRUGS (5)
  1. PACLITAXEL [Suspect]
     Active Substance: PACLITAXEL
     Indication: Triple negative breast cancer
     Dosage: ASSOCIATION WITH KEYTRUDA
     Dates: start: 20220706
  2. CARBOPLATIN [Suspect]
     Active Substance: CARBOPLATIN
     Indication: Triple negative breast cancer
     Dosage: ASSOCIATION WITH KEYTRUDA
     Dates: start: 20220706
  3. EPIRUBICIN HYDROCHLORIDE [Suspect]
     Active Substance: EPIRUBICIN HYDROCHLORIDE
     Indication: Triple negative breast cancer
     Dosage: ASSOCIATION WITH KEYTRUDA
     Dates: start: 20220929
  4. CYCLOPHOSPHAMIDE [Suspect]
     Active Substance: CYCLOPHOSPHAMIDE
     Indication: Triple negative breast cancer
     Dosage: ASSOCIATION WITH KEYTRUDA
     Dates: start: 20220929
  5. KEYTRUDA [Suspect]
     Active Substance: PEMBROLIZUMAB
     Indication: Triple negative breast cancer
     Dosage: 200 MG, CYCLIC
     Route: 042
     Dates: start: 20220706

REACTIONS (10)
  - Neutropenia [Recovering/Resolving]
  - Neuropathy peripheral [Recovering/Resolving]
  - Thrombocytopenia [Recovering/Resolving]
  - Asthenia [Recovering/Resolving]
  - Gastrointestinal disorder [Recovering/Resolving]
  - Anaemia [Not Recovered/Not Resolved]
  - Nausea [Not Recovered/Not Resolved]
  - Dysaesthesia [Recovering/Resolving]
  - Dermatitis allergic [Recovering/Resolving]
  - Off label use [Unknown]

NARRATIVE: CASE EVENT DATE: 20220701
